FAERS Safety Report 7723562-5 (Version None)
Quarter: 2011Q3

REPORT INFORMATION
  Report Type: 
  Country: None (occurrence: None)
  Receive Date: 20110901
  Receipt Date: 20110826
  Transmission Date: 20111222
  Serious: Yes (Hospitalization, Other)
  Sender: FDA-Public Use
  Company Number: US-PFIZER INC-2010161445

PATIENT
  Sex: Female

DRUGS (4)
  1. DILANTIN [Suspect]
     Dosage: 100 MG, 4 CAPSULES ONCE DAILY
     Route: 048
     Dates: start: 20090608
  2. DILANTIN-125 [Suspect]
     Dosage: 400 MG, UNK
     Dates: start: 20090101, end: 20090101
  3. DILANTIN [Suspect]
     Dosage: 100 MG, 3 CAPSULES ONCE DAILY
     Route: 048
     Dates: start: 20090511
  4. PREVACID [Concomitant]
     Dosage: 30 MG, UNK
     Route: 048
     Dates: start: 20090601

REACTIONS (1)
  - STEVENS-JOHNSON SYNDROME [None]
